APPROVED DRUG PRODUCT: NEBIVOLOL HYDROCHLORIDE
Active Ingredient: NEBIVOLOL HYDROCHLORIDE
Strength: EQ 2.5MG BASE
Dosage Form/Route: TABLET;ORAL
Application: A216568 | Product #001 | TE Code: AB
Applicant: REGCON HOLDINGS LLC
Approved: Mar 30, 2023 | RLD: No | RS: No | Type: RX